APPROVED DRUG PRODUCT: IPRATROPIUM BROMIDE
Active Ingredient: IPRATROPIUM BROMIDE
Strength: 0.02%
Dosage Form/Route: SOLUTION;INHALATION
Application: A077072 | Product #001
Applicant: LANDELA PHARMACEUTICAL
Approved: Jul 19, 2005 | RLD: No | RS: No | Type: DISCN